FAERS Safety Report 10041673 (Version 2)
Quarter: 2014Q2

REPORT INFORMATION
  Report Type: Report from Study
  Country: US (occurrence: US)
  Receive Date: 20140327
  Receipt Date: 20140425
  Transmission Date: 20141212
  Serious: Yes (Other)
  Sender: FDA-Public Use
  Company Number: US-ACTELION-A-US2014-96664

PATIENT
  Age: 60 Year
  Sex: Female

DRUGS (1)
  1. VENTAVIS [Suspect]
     Indication: PULMONARY ARTERIAL HYPERTENSION
     Dosage: UNK
     Route: 055
     Dates: end: 2014

REACTIONS (7)
  - Weight increased [Unknown]
  - Nasal congestion [Unknown]
  - Productive cough [Unknown]
  - Chest pain [Unknown]
  - Painful respiration [Unknown]
  - Fluid retention [Unknown]
  - Dyspnoea [Unknown]
